FAERS Safety Report 12196168 (Version 1)
Quarter: 2016Q1

REPORT INFORMATION
  Report Type: Spontaneous
  Country: DE (occurrence: DE)
  Receive Date: 20160321
  Receipt Date: 20160321
  Transmission Date: 20160526
  Serious: Yes (Hospitalization)
  Sender: FDA-Public Use
  Company Number: DE-JNJFOC-20160316496

PATIENT
  Age: 54 Year
  Sex: Male
  Weight: 90 kg

DRUGS (1)
  1. XARELTO [Suspect]
     Active Substance: RIVAROXABAN
     Indication: PULMONARY EMBOLISM
     Route: 048
     Dates: start: 20151125

REACTIONS (2)
  - Partial seizures [Recovered/Resolved]
  - Temporal lobe epilepsy [Recovered/Resolved]

NARRATIVE: CASE EVENT DATE: 20160108
